FAERS Safety Report 6764836-4 (Version None)
Quarter: 2010Q2

REPORT INFORMATION
  Report Type: 
  Country: None (occurrence: None)
  Receive Date: 20100610
  Receipt Date: 20100531
  Transmission Date: 20101027
  Serious: Yes (Other)
  Sender: FDA-Public Use
  Company Number: BR-PFIZER INC-2010043220

PATIENT
  Age: 49 Year
  Sex: Female
  Weight: 57 kg

DRUGS (1)
  1. CHAMPIX [Suspect]
     Indication: TOBACCO USER
     Dosage: 1 MG, EVERY 12 HOURS
     Route: 048
     Dates: start: 20100301, end: 20100420

REACTIONS (4)
  - DYSPNOEA [None]
  - OESOPHAGEAL DISCOMFORT [None]
  - OESOPHAGEAL DISORDER [None]
  - OESOPHAGEAL PAIN [None]
